FAERS Safety Report 6004034-5 (Version None)
Quarter: 2008Q4

REPORT INFORMATION
  Report Type: 
  Country: None (occurrence: None)
  Receive Date: 20081216
  Receipt Date: 20081211
  Transmission Date: 20090506
  Serious: Yes (Hospitalization)
  Sender: FDA-Public Use
  Company Number: A0760259A

PATIENT
  Age: 31 Month
  Sex: Female
  Weight: 11 kg

DRUGS (3)
  1. AMOXICILLIN + CLAVULANATE POTASSIUM [Suspect]
     Dosage: 250MG TWICE PER DAY
     Route: 048
     Dates: start: 20081125, end: 20081128
  2. CEFUROXIME [Suspect]
     Dosage: 250MG TWICE PER DAY
     Route: 048
     Dates: start: 20081201
  3. IBUPROFEN [Concomitant]
     Dates: start: 20081125, end: 20081128

REACTIONS (4)
  - DRUG ADMINISTRATION ERROR [None]
  - DRUG INEFFECTIVE [None]
  - INFECTION [None]
  - OROPHARYNGEAL PAIN [None]
